FAERS Safety Report 21815054 (Version 1)
Quarter: 2023Q1

REPORT INFORMATION
  Report Type: Other
  Country: US (occurrence: US)
  Receive Date: 20230104
  Receipt Date: 20230104
  Transmission Date: 20230418
  Serious: No
  Sender: FDA-Public Use
  Company Number: US-APOTEX-2022AP005975

PATIENT
  Sex: Male

DRUGS (11)
  1. CILOSTAZOL [Suspect]
     Active Substance: CILOSTAZOL
     Indication: Intermittent claudication
     Dosage: 50 MILLIGRAM, BID, 1 TABLET TWO TIMES A DAY
     Route: 048
  2. CILOSTAZOL [Suspect]
     Active Substance: CILOSTAZOL
     Indication: Intermittent claudication
     Dosage: UNK
     Route: 048
  3. PREGABALIN [Concomitant]
     Active Substance: PREGABALIN
     Indication: Product used for unknown indication
     Dosage: 1 DOSAGE FORM, BID
     Route: 048
  4. XTAMPZA ER [Concomitant]
     Active Substance: OXYCODONE
     Indication: Pain
     Dosage: 1 DOSAGE FORM, BID
     Route: 048
  5. XTAMPZA ER [Concomitant]
     Active Substance: OXYCODONE
     Indication: Pain
     Dosage: 1 DOSAGE FORM, BID
     Route: 048
  6. OXYCODONE AND ACETAMINOPHEN [Concomitant]
     Active Substance: ACETAMINOPHEN\OXYCODONE HYDROCHLORIDE
     Indication: Pain
     Dosage: 10MG /325MG, 1 TABLET 3 TIMES A DAY, AS NEEDED
     Route: 048
  7. PANTOPRAZOLE [Concomitant]
     Active Substance: PANTOPRAZOLE
     Indication: Gastrooesophageal reflux disease
     Dosage: 40 MILLIGRAM, QD, 1 TABLET ONCE A DAY
     Route: 048
  8. CARVEDILOL [Concomitant]
     Active Substance: CARVEDILOL
     Indication: Cardiac failure
     Dosage: 12.5 MILLIGRAM, BID, TWO TIMES A DAY
     Route: 048
  9. LORATADINE [Concomitant]
     Active Substance: LORATADINE
     Indication: Hypersensitivity
     Dosage: 10 MILLIGRAM, QD, ONCE DAILLY
     Route: 048
  10. TRELEGY ELLIPTA [Concomitant]
     Active Substance: FLUTICASONE FUROATE\UMECLIDINIUM BROMIDE\VILANTEROL TRIFENATATE
     Indication: Chronic obstructive pulmonary disease
     Dosage: 200MCG/ 62.5MCG/ 25MCG 1 INHALATION DAILY
  11. VENTOLIN [Concomitant]
     Active Substance: ALBUTEROL SULFATE
     Indication: Chronic obstructive pulmonary disease
     Dosage: 1 DOSAGE FORM, QID, 1 INHALATION 4 TIMES A DAY AS NEEDED

REACTIONS (2)
  - Product dispensing error [Unknown]
  - No adverse event [Unknown]
